FAERS Safety Report 5983926-7 (Version None)
Quarter: 2008Q4

REPORT INFORMATION
  Report Type: 
  Country: None (occurrence: None)
  Receive Date: 20081208
  Receipt Date: 20081124
  Transmission Date: 20090506
  Serious: Yes (Other)
  Sender: FDA-Public Use
  Company Number: DE-ROCHE-599285

PATIENT
  Age: 54 Year
  Sex: Male

DRUGS (2)
  1. XELODA [Suspect]
     Route: 065
  2. XELODA [Suspect]
     Route: 065

REACTIONS (4)
  - ANAEMIA [None]
  - LEUKOPENIA [None]
  - METASTASES TO LIVER [None]
  - NEUTROPENIA [None]
